FAERS Safety Report 14015398 (Version 2)
Quarter: 2017Q4

REPORT INFORMATION
  Report Type: Spontaneous
  Country: GR (occurrence: GR)
  Receive Date: 20170927
  Receipt Date: 20171013
  Transmission Date: 20180321
  Serious: Yes (Other)
  Sender: FDA-Public Use
  Company Number: PHHY2017GR139407

PATIENT
  Age: 81 Year
  Sex: Male

DRUGS (1)
  1. VOTRIENT [Suspect]
     Active Substance: PAZOPANIB HYDROCHLORIDE
     Indication: RENAL CELL CARCINOMA
     Dosage: 800 MG, UNK
     Route: 065
     Dates: start: 201708

REACTIONS (7)
  - Metastases to liver [Unknown]
  - Albuminuria [Unknown]
  - Red blood cell schistocytes present [Unknown]
  - Anaemia [Unknown]
  - Metastases to bone [Unknown]
  - Hypertension [Unknown]
  - Oedema [Unknown]
